FAERS Safety Report 12932969 (Version 1)
Quarter: 2016Q4

REPORT INFORMATION
  Report Type: Spontaneous
  Country: US (occurrence: US)
  Receive Date: 20161111
  Receipt Date: 20161111
  Transmission Date: 20170207
  Serious: Yes (Hospitalization, Other)
  Sender: FDA-Public Use
  Company Number: US-PFIZER INC-2016514866

PATIENT
  Age: 73 Year
  Sex: Female
  Weight: 83.91 kg

DRUGS (1)
  1. BOSULIF [Suspect]
     Active Substance: BOSUTINIB MONOHYDRATE
     Indication: LEUKAEMIA
     Dosage: 300 MG, 1X/DAY (LAST FILLED DATE ON 15JUL2016)
     Route: 048
     Dates: end: 20161029

REACTIONS (5)
  - Cerebrovascular accident [Unknown]
  - Delusion [Not Recovered/Not Resolved]
  - Amnesia [Not Recovered/Not Resolved]
  - Renal failure [Not Recovered/Not Resolved]
  - Condition aggravated [Not Recovered/Not Resolved]

NARRATIVE: CASE EVENT DATE: 20161029
